FAERS Safety Report 6238033-5 (Version None)
Quarter: 2009Q2

REPORT INFORMATION
  Report Type: 
  Country: None (occurrence: None)
  Receive Date: 20090622
  Receipt Date: 20090618
  Transmission Date: 20091009
  Serious: Yes (Other)
  Sender: FDA-Public Use
  Company Number: GR-BRISTOL-MYERS SQUIBB COMPANY-14650782

PATIENT
  Age: 42 Year
  Sex: Male

DRUGS (3)
  1. BARACLUDE [Suspect]
     Indication: HEPATITIS B
     Route: 048
     Dates: start: 20070227
  2. ADEFOVIR DIPIVOXIL KIT [Suspect]
     Dates: start: 20070227
  3. HEPSERA [Concomitant]

REACTIONS (1)
  - OESOPHAGEAL CARCINOMA [None]
